FAERS Safety Report 21695871 (Version 1)
Quarter: 2022Q4

REPORT INFORMATION
  Report Type: Spontaneous
  Country: US (occurrence: US)
  Receive Date: 20221207
  Receipt Date: 20221207
  Transmission Date: 20230113
  Serious: No
  Sender: FDA-Public Use
  Company Number: US-SA-2022SA493997

PATIENT
  Age: 51 Year
  Sex: Male
  Weight: 88.435 kg

DRUGS (2)
  1. FABRAZYME [Suspect]
     Active Substance: AGALSIDASE BETA
     Indication: Fabry^s disease
     Dosage: 10 MG, Q10D
     Route: 042
     Dates: start: 202109
  2. FABRAZYME [Suspect]
     Active Substance: AGALSIDASE BETA
     Indication: Proteinuria
     Dosage: 70 MG, Q10D
     Route: 042

REACTIONS (3)
  - Weight increased [Unknown]
  - Inappropriate schedule of product administration [Unknown]
  - Product use in unapproved indication [Unknown]

NARRATIVE: CASE EVENT DATE: 20210901
